FAERS Safety Report 17924027 (Version 1)
Quarter: 2020Q2

REPORT INFORMATION
  Report Type: Spontaneous
  Country: DK (occurrence: DK)
  Receive Date: 20200622
  Receipt Date: 20200622
  Transmission Date: 20200714
  Serious: Yes (Other)
  Sender: FDA-Public Use
  Company Number: DK-ACCORD-185987

PATIENT
  Age: 70 Year
  Sex: Female

DRUGS (2)
  1. IBANDRONATE STADA [Suspect]
     Active Substance: IBANDRONATE SODIUM
     Indication: METASTASES TO BONE
     Dosage: STRENGTH: 50 MG
     Route: 048
     Dates: start: 2016
  2. ZOLEDRONIC ACID ACCORD [Suspect]
     Active Substance: ZOLEDRONIC ACID
     Indication: METASTASES TO BONE
     Dosage: STRENGTH: 4MG / 5ML
     Route: 042
     Dates: start: 201904, end: 202005

REACTIONS (2)
  - Osteonecrosis of jaw [Recovering/Resolving]
  - Exposed bone in jaw [Unknown]

NARRATIVE: CASE EVENT DATE: 2020
